FAERS Safety Report 5594202-9 (Version None)
Quarter: 2008Q1

REPORT INFORMATION
  Report Type: 
  Country: None (occurrence: None)
  Receive Date: 20080115
  Receipt Date: 20080109
  Transmission Date: 20080703
  Serious: Yes (Death, Hospitalization)
  Sender: FDA-Public Use
  Company Number: 144-C5013-07120113

PATIENT
  Age: 74 Year
  Sex: Female

DRUGS (1)
  1. CC-5013 (LENALIDOMIDE) [Suspect]
     Indication: MULTIPLE MYELOMA
     Dosage: 10 MG, QOD X 21 DAYS, ORAL
     Route: 048
     Dates: start: 20071015, end: 20071020

REACTIONS (3)
  - DISEASE PROGRESSION [None]
  - METABOLIC ENCEPHALOPATHY [None]
  - MYOCLONUS [None]
